FAERS Safety Report 8189193-0 (Version None)
Quarter: 2012Q1

REPORT INFORMATION
  Report Type: 
  Country: None (occurrence: None)
  Receive Date: 20120306
  Receipt Date: 20120306
  Transmission Date: 20120608
  Serious: Yes (Other)
  Sender: FDA-Public Use
  Company Number: None

PATIENT
  Age: 49 Year
  Sex: Female

DRUGS (2)
  1. ACTOS [Suspect]
     Indication: ASTHMA
     Dosage: 30 MG (2 PILLS) ONCE A DAY FOR 2 WKS ORAL
     Route: 048
     Dates: start: 20120217, end: 20120302
  2. ADVAIR DISKUS 100/50 [Concomitant]

REACTIONS (4)
  - ASTHMA [None]
  - EYELID OEDEMA [None]
  - OEDEMA PERIPHERAL [None]
  - SWELLING FACE [None]
